FAERS Safety Report 4974008-1 (Version None)
Quarter: 2006Q2

REPORT INFORMATION
  Report Type: 
  Country: None (occurrence: None)
  Receive Date: 20060410
  Receipt Date: 20060328
  Transmission Date: 20061013
  Serious: Yes (Hospitalization, Other)
  Sender: FDA-Public Use
  Company Number: HQWYE963411OCT05

PATIENT
  Age: 52 Year
  Sex: Female
  Weight: 70.82 kg

DRUGS (1)
  1. PREMPRO [Suspect]
     Indication: HORMONE REPLACEMENT THERAPY

REACTIONS (8)
  - BREAST CANCER METASTATIC [None]
  - LACTESCENT SERUM [None]
  - OESTROGEN RECEPTOR ASSAY POSITIVE [None]
  - PAGET'S DISEASE OF THE BREAST [None]
  - PERICARDIAL EFFUSION [None]
  - PLEURAL EFFUSION [None]
  - PROGESTERONE RECEPTOR ASSAY POSITIVE [None]
  - THROMBOSIS [None]
